FAERS Safety Report 11800686 (Version 1)
Quarter: 2015Q4

REPORT INFORMATION
  Report Type: Spontaneous
  Country: JP (occurrence: JP)
  Receive Date: 20151204
  Receipt Date: 20151204
  Transmission Date: 20160305
  Serious: Yes (Hospitalization, Other)
  Sender: FDA-Public Use
  Company Number: JP-ROCHE-1636091

PATIENT
  Age: 54 Year
  Sex: Female
  Weight: 97 kg

DRUGS (10)
  1. AVASTIN [Suspect]
     Active Substance: BEVACIZUMAB
     Indication: OVARIAN CANCER
     Dosage: DOSAGE IS UNCERTAIN.
     Route: 041
     Dates: start: 20140619, end: 20141127
  2. DOXIL (JAPAN) [Concomitant]
     Indication: OVARIAN CANCER
     Dosage: SINGLE AGENT
     Route: 042
     Dates: start: 20130424, end: 20140522
  3. NORVASC [Concomitant]
     Active Substance: AMLODIPINE BESYLATE
     Route: 048
     Dates: start: 20140619
  4. DOXIL (JAPAN) [Concomitant]
     Indication: OVARIAN CANCER
     Route: 042
  5. DOXORUBICIN HYDROCHLORIDE. [Concomitant]
     Active Substance: DOXORUBICIN HYDROCHLORIDE
  6. FLAVITAN [Concomitant]
     Active Substance: FLAVIN ADENINE DINUCLEOTIDE
     Route: 048
     Dates: start: 20130424
  7. TALION (JAPAN) [Concomitant]
     Active Substance: BEPOTASTINE
     Route: 048
     Dates: start: 20140828
  8. CELECOX [Suspect]
     Active Substance: CELECOXIB
     Indication: PRODUCT USED FOR UNKNOWN INDICATION
     Route: 048
     Dates: start: 20140828
  9. MAINTATE [Concomitant]
     Active Substance: BISOPROLOL FUMARATE
     Route: 048
  10. PYDOXAL [Concomitant]
     Active Substance: PYRIDOXAL
     Route: 048
     Dates: start: 20130424

REACTIONS (2)
  - Renal impairment [Recovering/Resolving]
  - Thrombotic microangiopathy [Unknown]

NARRATIVE: CASE EVENT DATE: 20141127
